FAERS Safety Report 24894215 (Version 1)
Quarter: 2025Q1

REPORT INFORMATION
  Report Type: Spontaneous
  Country: US (occurrence: US)
  Receive Date: 20250128
  Receipt Date: 20250128
  Transmission Date: 20250409
  Serious: No
  Sender: ELI LILLY AND COMPANY
  Company Number: US-ELI_LILLY_AND_COMPANY-US202501018828

PATIENT
  Age: 52 Year
  Sex: Female

DRUGS (10)
  1. HUMULIN R U-500 [Suspect]
     Active Substance: INSULIN HUMAN
     Indication: Diabetes mellitus
     Dosage: 136 U, EACH MORNING
     Route: 058
  2. HUMULIN R U-500 [Suspect]
     Active Substance: INSULIN HUMAN
     Indication: Diabetes mellitus
     Dosage: 136 U, EACH MORNING
     Route: 058
  3. HUMULIN R U-500 [Suspect]
     Active Substance: INSULIN HUMAN
     Dosage: 75 U, EACH EVENING
     Route: 058
  4. HUMULIN R U-500 [Suspect]
     Active Substance: INSULIN HUMAN
     Dosage: 75 U, EACH EVENING
     Route: 058
  5. HUMULIN R U-500 [Suspect]
     Active Substance: INSULIN HUMAN
     Dosage: 136 U, EACH MORNING
     Route: 058
  6. HUMULIN R U-500 [Suspect]
     Active Substance: INSULIN HUMAN
     Dosage: 136 U, EACH MORNING
     Route: 058
  7. HUMULIN R U-500 [Suspect]
     Active Substance: INSULIN HUMAN
     Dosage: 75 U, EACH EVENING
     Route: 058
  8. HUMULIN R U-500 [Suspect]
     Active Substance: INSULIN HUMAN
     Dosage: 75 U, EACH EVENING
     Route: 058
  9. HUMULIN R U-500 [Suspect]
     Active Substance: INSULIN HUMAN
     Dosage: 136 U, EACH MORNING
     Route: 058
  10. HUMULIN R U-500 [Suspect]
     Active Substance: INSULIN HUMAN
     Dosage: 75 U, EACH EVENING
     Route: 058

REACTIONS (2)
  - Blood glucose increased [Unknown]
  - Accidental underdose [Unknown]
